FAERS Safety Report 11990804 (Version 5)
Quarter: 2016Q2

REPORT INFORMATION
  Report Type: Report from Study
  Country: US (occurrence: US)
  Receive Date: 20160202
  Receipt Date: 20160404
  Transmission Date: 20160815
  Serious: Yes (Hospitalization)
  Sender: FDA-Public Use
  Company Number: US-BIOGEN-2016BI00177176

PATIENT
  Age: 63 Year
  Sex: Female

DRUGS (1)
  1. BIIB037 [Suspect]
     Active Substance: ADUCANUMAB
     Indication: DEMENTIA ALZHEIMER^S TYPE
     Route: 042
     Dates: start: 20131217

REACTIONS (1)
  - Ureteric obstruction [Recovered/Resolved]

NARRATIVE: CASE EVENT DATE: 20160119
